FAERS Safety Report 10191256 (Version 1)
Quarter: 2014Q2

REPORT INFORMATION
  Report Type: Spontaneous
  Country: TW (occurrence: TW)
  Receive Date: 20140523
  Receipt Date: 20140523
  Transmission Date: 20141212
  Serious: Yes (Other)
  Sender: FDA-Public Use
  Company Number: PHHY2014TW061061

PATIENT
  Age: 85 Year
  Sex: Male

DRUGS (1)
  1. PARACETAMOL [Suspect]

REACTIONS (5)
  - Drug eruption [Unknown]
  - Skin erosion [Unknown]
  - Blister [Unknown]
  - Oral disorder [Unknown]
  - Dermatitis bullous [Unknown]
